FAERS Safety Report 21672642 (Version 1)
Quarter: 2022Q4

REPORT INFORMATION
  Report Type: Report from Study
  Country: US (occurrence: US)
  Receive Date: 20221202
  Receipt Date: 20221202
  Transmission Date: 20230113
  Serious: No
  Sender: FDA-Public Use
  Company Number: US-ABBVIE-4173495

PATIENT
  Sex: Female

DRUGS (4)
  1. HUMIRA [Suspect]
     Active Substance: ADALIMUMAB
     Indication: Rheumatoid arthritis
     Route: 058
  2. Covid-19 vaccine [Concomitant]
     Indication: COVID-19 immunisation
     Dosage: FIRST DOSE?ONE IN ONCE
     Route: 030
     Dates: start: 20210306, end: 20210306
  3. Covid-19 vaccine [Concomitant]
     Indication: COVID-19 immunisation
     Dosage: SECOND DOSE?ONE IN ONCE
     Route: 030
     Dates: start: 20210327, end: 20210327
  4. Covid-19 vaccine [Concomitant]
     Indication: COVID-19 immunisation
     Dosage: THIRD DOSE?BOOSTER DOSE?ONE IN ONCE
     Route: 030
     Dates: start: 20211202, end: 20211202

REACTIONS (2)
  - Injection site erythema [Recovered/Resolved]
  - Injection site pruritus [Recovered/Resolved]
